FAERS Safety Report 8862744 (Version 1)
Quarter: 2012Q4

REPORT INFORMATION
  Report Type: 
  Country: US (occurrence: US)
  Receive Date: 20121026
  Receipt Date: 20121026
  Transmission Date: 20130627
  Serious: No
  Sender: FDA-Public Use
  Company Number: US-ALLERGAN-1210373US

PATIENT
  Age: 75 Year
  Sex: Female

DRUGS (7)
  1. ALPHAGAN P [Suspect]
     Indication: INTRAOCULAR PRESSURE
     Dosage: 2 Gtt, qd
     Route: 047
  2. ALPHAGAN P [Suspect]
     Dosage: 2 Gtt, bid
     Route: 047
     Dates: start: 20120717
  3. TRAVATAN Z [Concomitant]
     Indication: INTRAOCULAR PRESSURE
     Dosage: 2 Gtt, UNK
     Route: 047
  4. METOPROLOL SUCCINATE [Concomitant]
     Indication: DRUG USE FOR UNKNOWN INDICATION
     Route: 048
  5. WARFARIN [Concomitant]
     Indication: DRUG USE FOR UNKNOWN INDICATION
     Dosage: 5 mg, qd
     Route: 048
  6. WARFARIN [Concomitant]
     Dosage: 2.5 mg, qd
     Route: 048
  7. ALCON AE [Concomitant]
     Indication: DRY EYES
     Route: 047

REACTIONS (8)
  - Diarrhoea [Recovered/Resolved]
  - Flatulence [Recovered/Resolved]
  - Gastric disorder [Recovered/Resolved]
  - Inappropriate schedule of drug administration [Unknown]
  - Discomfort [Recovered/Resolved]
  - Middle insomnia [Recovered/Resolved]
  - Dry mouth [Recovered/Resolved]
  - Therapeutic response decreased [Unknown]
